FAERS Safety Report 9508599 (Version 2)
Quarter: 2013Q4

REPORT INFORMATION
  Report Type: Spontaneous
  Country: MX (occurrence: MX)
  Receive Date: 20130909
  Receipt Date: 20131009
  Transmission Date: 20140711
  Serious: Yes (Life-Threatening, Hospitalization)
  Sender: FDA-Public Use
  Company Number: MX-BAXTER-2013BAX034718

PATIENT
  Age: 13 Year
  Sex: Male

DRUGS (1)
  1. HEMOFIL M [Suspect]
     Indication: FACTOR VIII DEFICIENCY
     Route: 042
     Dates: start: 20130806, end: 20130806

REACTIONS (7)
  - Hyperhidrosis [Recovered/Resolved]
  - Face oedema [Recovered/Resolved]
  - Lip oedema [Recovered/Resolved]
  - Conjunctival hyperaemia [Recovered/Resolved]
  - Dermatitis exfoliative [Recovered/Resolved]
  - Vomiting projectile [Recovered/Resolved]
  - Hypotension [Recovered/Resolved]
